FAERS Safety Report 9319688 (Version 2)
Quarter: 2013Q2

REPORT INFORMATION
  Report Type: Spontaneous
  Country: IN (occurrence: IN)
  Receive Date: 20130530
  Receipt Date: 20130605
  Transmission Date: 20140414
  Serious: Yes (Other)
  Sender: FDA-Public Use
  Company Number: PHHY2013IN052735

PATIENT
  Age: 54 Year
  Sex: Female

DRUGS (3)
  1. CICLOSPORIN [Suspect]
     Indication: DERMATITIS ATOPIC
     Dosage: 5 MG, DAILY IN THREE DIVIDED DOSES
     Route: 048
  2. TOPICAL STEROIDS [Concomitant]
     Indication: PRURITUS
     Route: 061
  3. ANTIHISTAMINES [Concomitant]
     Indication: PRURITUS
     Route: 048

REACTIONS (5)
  - Keratosis follicular [Unknown]
  - Hair disorder [Recovering/Resolving]
  - Alopecia [Unknown]
  - Skin lesion [Recovered/Resolved]
  - Rash [Recovering/Resolving]
